FAERS Safety Report 8302781-3 (Version None)
Quarter: 2012Q2

REPORT INFORMATION
  Report Type: 
  Country: None (occurrence: None)
  Receive Date: 20120420
  Receipt Date: 20110711
  Transmission Date: 20120825
  Serious: No
  Sender: FDA-Public Use
  Company Number: US-PFIZER INC-K201100800

PATIENT
  Age: 54 Year
  Sex: Female
  Weight: 51.247 kg

DRUGS (6)
  1. MULTI-VITAMIN [Concomitant]
  2. TAPAZOLE [Suspect]
     Indication: HYPERTHYROIDISM
     Dosage: 10 MG, 2X/DAY
     Route: 048
     Dates: start: 20101230, end: 20110101
  3. TAPAZOLE [Suspect]
     Dosage: 15 MG, 2X/DAY
     Route: 048
     Dates: start: 20110101, end: 20110101
  4. TAPAZOLE [Suspect]
     Dosage: 5 MG, 2X/DAY
     Route: 048
     Dates: start: 20110101, end: 20110101
  5. TAPAZOLE [Suspect]
     Dosage: 5 MG, 1X/DAY
     Route: 048
     Dates: start: 20110701, end: 20110701
  6. CALCIUM [Concomitant]

REACTIONS (11)
  - BLOOD THYROID STIMULATING HORMONE INCREASED [None]
  - NAUSEA [None]
  - WEIGHT INCREASED [None]
  - ASTHENIA [None]
  - LOW DENSITY LIPOPROTEIN INCREASED [None]
  - ABDOMINAL DISTENSION [None]
  - MALAISE [None]
  - HYPOTHYROIDISM [None]
  - MUSCULAR WEAKNESS [None]
  - FATIGUE [None]
  - FEELING ABNORMAL [None]
